FAERS Safety Report 21908151 (Version 1)
Quarter: 2023Q1

REPORT INFORMATION
  Report Type: Spontaneous
  Country: US (occurrence: None)
  Receive Date: 20230124
  Receipt Date: 20230124
  Transmission Date: 20230418
  Serious: Yes (Hospitalization)
  Sender: FDA-Public Use
  Company Number: None

PATIENT
  Sex: Male

DRUGS (3)
  1. DROXIDOPA [Suspect]
     Active Substance: DROXIDOPA
     Indication: Dizziness
     Dosage: FREQUENCY : 3 TIMES A DAY;?
     Route: 048
     Dates: start: 20221026
  2. DROXIDOPA [Suspect]
     Active Substance: DROXIDOPA
     Indication: Syncope
  3. DROXIDOPA [Suspect]
     Active Substance: DROXIDOPA
     Indication: Parkinson^s disease

REACTIONS (1)
  - Loss of consciousness [None]
